FAERS Safety Report 13041673 (Version 1)
Quarter: 2016Q4

REPORT INFORMATION
  Report Type: Spontaneous
  Country: US (occurrence: US)
  Receive Date: 20161219
  Receipt Date: 20161219
  Transmission Date: 20170207
  Serious: No
  Sender: FDA-Public Use
  Company Number: US-ROCHE-1349938

PATIENT
  Age: 53 Year
  Sex: Female

DRUGS (1)
  1. VEMURAFENIB [Suspect]
     Active Substance: VEMURAFENIB
     Indication: METASTATIC MALIGNANT MELANOMA
     Dosage: DOSE REDUCED MANY TIMES
     Route: 048

REACTIONS (1)
  - Recall phenomenon [Not Recovered/Not Resolved]
